FAERS Safety Report 15758362 (Version 1)
Quarter: 2018Q4

REPORT INFORMATION
  Report Type: Spontaneous
  Country: US (occurrence: US)
  Receive Date: 20181225
  Receipt Date: 20181225
  Transmission Date: 20190205
  Serious: Yes (Hospitalization)
  Sender: FDA-Public Use
  Company Number: US-ROCHE-2235692

PATIENT
  Age: 46 Year
  Sex: Male

DRUGS (1)
  1. ACTILYSE [Suspect]
     Active Substance: ALTEPLASE
     Indication: PULMONARY EMBOLISM
     Dosage: 10 MG, FOLLOWED BY 90 MG INFUSION
     Route: 065

REACTIONS (2)
  - Melaena [Unknown]
  - Anaemia [Unknown]
